FAERS Safety Report 13807458 (Version 1)
Quarter: 2017Q3

REPORT INFORMATION
  Report Type: Spontaneous
  Country: US (occurrence: US)
  Receive Date: 20170728
  Receipt Date: 20170728
  Transmission Date: 20171127
  Serious: Yes (Other)
  Sender: FDA-Public Use
  Company Number: US-JUBILANT CADISTA PHARMACEUTICALS-2017JUB00258

PATIENT
  Age: 45 Year
  Sex: Male
  Weight: 65.76 kg

DRUGS (6)
  1. PREDNISONE. [Suspect]
     Active Substance: PREDNISONE
     Indication: BRONCHITIS
     Dosage: 30 MG, 1X/DAY
     Route: 048
     Dates: start: 20160916, end: 20160917
  2. PREDNISONE. [Suspect]
     Active Substance: PREDNISONE
     Dosage: 20 MG, 1X/DAY
     Route: 048
     Dates: start: 20160918, end: 20160919
  3. PREDNISONE. [Suspect]
     Active Substance: PREDNISONE
     Dosage: 10 MG, 1X/DAY
     Route: 048
     Dates: start: 20160920, end: 20160921
  4. NORVIR [Suspect]
     Active Substance: RITONAVIR
  5. PREDNISONE (ACTAVIS) [Suspect]
     Active Substance: PREDNISONE
     Dosage: UNK
     Dates: start: 20161010
  6. METOPROLOL TARTRATE. [Concomitant]
     Active Substance: METOPROLOL TARTRATE
     Dosage: 100 MG, 2X/DAY

REACTIONS (15)
  - Phobia [Not Recovered/Not Resolved]
  - Dyspnoea [Unknown]
  - Cushing^s syndrome [Recovering/Resolving]
  - Paranoia [Not Recovered/Not Resolved]
  - Arthralgia [Recovering/Resolving]
  - Musculoskeletal pain [Recovering/Resolving]
  - Acne [Recovering/Resolving]
  - Chest discomfort [Unknown]
  - Fear [Not Recovered/Not Resolved]
  - Rash [Unknown]
  - Bipolar disorder [Not Recovered/Not Resolved]
  - Drug interaction [Recovered/Resolved]
  - Alopecia [Recovered/Resolved]
  - Suicidal ideation [Not Recovered/Not Resolved]
  - Chest pain [Recovered/Resolved]

NARRATIVE: CASE EVENT DATE: 201609
